FAERS Safety Report 16206313 (Version 1)
Quarter: 2019Q2

REPORT INFORMATION
  Report Type: Spontaneous
  Country: US (occurrence: US)
  Receive Date: 20190312
  Receipt Date: 20190312
  Transmission Date: 20190711
  Serious: Yes (Hospitalization)
  Sender: FDA-Public Use
  Company Number: None

PATIENT
  Age: 22 Year
  Sex: Female

DRUGS (15)
  1. PHYTONADIONE. [Concomitant]
     Active Substance: PHYTONADIONE
  2. LEVALBUTEROL. [Concomitant]
     Active Substance: LEVALBUTEROL
  3. BUDESONIDE. [Concomitant]
     Active Substance: BUDESONIDE
  4. LEVOFLOXACIN. [Concomitant]
     Active Substance: LEVOFLOXACIN
  5. BUPROPION. [Concomitant]
     Active Substance: BUPROPION
  6. LANTUS [Concomitant]
     Active Substance: INSULIN GLARGINE
  7. DULERA [Concomitant]
     Active Substance: FORMOTEROL FUMARATE DIHYDRATE\MOMETASONE FUROATE
  8. CONCERTA [Concomitant]
     Active Substance: METHYLPHENIDATE HYDROCHLORIDE
  9. CREON [Concomitant]
     Active Substance: PANCRELIPASE AMYLASE\PANCRELIPASE LIPASE\PANCRELIPASE PROTEASE
  10. ESCITALOPRAM [Concomitant]
     Active Substance: ESCITALOPRAM OXALATE
  11. METHYLPHENID [Concomitant]
     Active Substance: METHYLPHENIDATE
  12. AUTOSHIELD MS [Concomitant]
  13. IPRATROPIUM/SOL ALBUTEROL [Concomitant]
  14. CAYSTON [Concomitant]
     Active Substance: AZTREONAM
  15. HYPERSAL 3.5 % 4ML NEB [Suspect]
     Active Substance: SODIUM CHLORIDE
     Indication: CYSTIC FIBROSIS
     Route: 055
     Dates: start: 20181110

REACTIONS (3)
  - Dyspnoea [None]
  - Hospitalisation [None]
  - Therapy cessation [None]

NARRATIVE: CASE EVENT DATE: 20190214
